FAERS Safety Report 17873400 (Version 1)
Quarter: 2020Q2

REPORT INFORMATION
  Report Type: Spontaneous
  Country: KZ (occurrence: KZ)
  Receive Date: 20200609
  Receipt Date: 20200609
  Transmission Date: 20200714
  Serious: Yes (Hospitalization, Other)
  Sender: FDA-Public Use
  Company Number: KZ-EMD SERONO-9166956

PATIENT
  Age: 17 Year
  Sex: Female

DRUGS (1)
  1. REBIF [Suspect]
     Active Substance: INTERFERON BETA-1A
     Indication: MULTIPLE SCLEROSIS

REACTIONS (6)
  - Quality of life decreased [Unknown]
  - Communication disorder [Unknown]
  - Mood swings [Unknown]
  - Temperature intolerance [Unknown]
  - Suicidal ideation [Unknown]
  - Multiple sclerosis relapse [Unknown]
